FAERS Safety Report 9019513 (Version 1)
Quarter: 2013Q1

REPORT INFORMATION
  Report Type: Report from Study
  Country: FR (occurrence: FR)
  Receive Date: 20130118
  Receipt Date: 20130118
  Transmission Date: 20140127
  Serious: Yes (Death)
  Sender: FDA-Public Use
  Company Number: FR-ROCHE-1178117

PATIENT
  Sex: Male

DRUGS (9)
  1. BEVACIZUMAB [Suspect]
     Indication: COLON CANCER
     Dosage: LAST DOSE ADMINITERED 315 MG
     Route: 065
  2. IRINOTECAN [Suspect]
     Indication: COLON CANCER
     Dosage: LAST DOSE ADMINITERED 316.8
     Route: 065
  3. ELVORINE [Suspect]
     Indication: COLON CANCER
     Dosage: LAST DOSE ADMINITERED 352 MG
     Route: 065
  4. 5-FLUOROURACIL [Suspect]
     Indication: COLON CANCER
     Dosage: LAST DOSE ADMINITERED 704 MGIN BOLUS AND 4224 MG AS CONTINUOUS DOSING
     Route: 065
  5. EMEND [Concomitant]
     Indication: VOMITING
     Route: 065
     Dates: start: 20121220, end: 20121221
  6. EMEND [Concomitant]
     Indication: NAUSEA
  7. ZOPHREN [Concomitant]
     Indication: VOMITING
     Route: 065
     Dates: start: 20121220, end: 20121221
  8. ZOPHREN [Concomitant]
     Indication: NAUSEA
  9. SOLUPRED (FRANCE) [Concomitant]
     Indication: PAIN
     Route: 065
     Dates: start: 20121220, end: 20121222

REACTIONS (1)
  - Death [Fatal]
